FAERS Safety Report 13584011 (Version 4)
Quarter: 2017Q4

REPORT INFORMATION
  Report Type: Report from Study
  Country: SG (occurrence: SG)
  Receive Date: 20170526
  Receipt Date: 20171102
  Transmission Date: 20180320
  Serious: Yes (Hospitalization, Other)
  Sender: FDA-Public Use
  Company Number: PHHO2017SG007529

PATIENT
  Age: 70 Year
  Sex: Male
  Weight: 67.6 kg

DRUGS (39)
  1. DIOVAN [Suspect]
     Active Substance: VALSARTAN
     Dosage: CODE NOT BROKEN
     Route: 048
     Dates: start: 20170725, end: 20170916
  2. SITAGLIPTIN [Concomitant]
     Active Substance: SITAGLIPTIN
     Indication: DIABETES MELLITUS
     Dosage: 2.5 MG, QD (OM)
     Route: 048
     Dates: end: 20170530
  3. DUODART [Concomitant]
     Active Substance: DUTASTERIDE\TAMSULOSIN
     Indication: BENIGN PROSTATIC HYPERPLASIA
     Dosage: 1 DF, QD (OM)
     Route: 048
     Dates: start: 20150519, end: 20170530
  4. CETAPHIL GENTLE SKIN CLEANSER [Concomitant]
     Active Substance: COSMETICS
     Indication: ECZEMA ASTEATOTIC
     Dosage: WASH DAILY
     Route: 065
     Dates: start: 20151221, end: 20170916
  5. BLINDED LCZ696 [Suspect]
     Active Substance: SACUBITRIL\VALSARTAN
     Dosage: CODE NOT BROKEN
     Route: 048
     Dates: start: 20170429
  6. BLINDED LCZ696 [Suspect]
     Active Substance: SACUBITRIL\VALSARTAN
     Dosage: CODE NOT BROKEN
     Route: 048
     Dates: start: 20170725, end: 20170916
  7. LASIX [Concomitant]
     Active Substance: FUROSEMIDE
     Indication: CARDIAC FAILURE
     Dosage: 60 MG, QD
     Route: 048
     Dates: start: 20170424, end: 20170530
  8. LASIX [Concomitant]
     Active Substance: FUROSEMIDE
     Dosage: UNK
     Route: 048
     Dates: start: 20171017
  9. CEFTRIAXONE. [Concomitant]
     Active Substance: CEFTRIAXONE
     Indication: PRODUCT USED FOR UNKNOWN INDICATION
     Route: 065
  10. LORATADIN [Concomitant]
     Active Substance: LORATADINE
     Indication: PRODUCT USED FOR UNKNOWN INDICATION
     Route: 065
  11. BLINDED NO TREATMENT RECEIVED [Suspect]
     Active Substance: INVESTIGATIONAL PRODUCT
     Dosage: CODE NOT BROKEN
     Route: 048
     Dates: start: 20170725, end: 20170916
  12. CARVEDILOL. [Suspect]
     Active Substance: CARVEDILOL
     Dosage: 6.25 MG, BID
     Route: 048
     Dates: start: 20160810, end: 20170530
  13. GLIPIZIDE. [Concomitant]
     Active Substance: GLIPIZIDE
     Dosage: 2.5 MG, QD (OM)
     Route: 048
     Dates: start: 20170725, end: 20170916
  14. DUODART [Concomitant]
     Active Substance: DUTASTERIDE\TAMSULOSIN
     Dosage: 0.5 MG, QD (OM)
     Route: 048
     Dates: start: 20170615, end: 20170916
  15. CARVEDILOL. [Concomitant]
     Active Substance: CARVEDILOL
     Indication: HYPERTENSION
     Dosage: 6.25 MG, BID
     Route: 048
     Dates: start: 20160810, end: 20170916
  16. CETAPHIL [Concomitant]
     Active Substance: AVOBENZONE\OCTOCRYLENE\TRICLOSAN
     Indication: ECZEMA ASTEATOTIC
     Dosage: 1 APPLICATION BID
     Route: 061
     Dates: start: 20150203, end: 20170916
  17. PIRITON [Concomitant]
     Active Substance: CHLORPHENIRAMINE MALEATE
     Indication: PRODUCT USED FOR UNKNOWN INDICATION
     Route: 065
  18. CARVEDILOL. [Suspect]
     Active Substance: CARVEDILOL
     Indication: HYPERTENSION
     Dosage: 3.125 MG, BID
     Route: 048
     Dates: start: 20150321
  19. SITAGLIPTIN [Concomitant]
     Active Substance: SITAGLIPTIN
     Dosage: 25 MG, QD (OM)
     Route: 048
     Dates: start: 20170725, end: 20170916
  20. PIPERACILLIN [Concomitant]
     Active Substance: PIPERACILLIN
     Indication: PRODUCT USED FOR UNKNOWN INDICATION
     Route: 065
  21. TAZOBACTAM [Concomitant]
     Active Substance: TAZOBACTAM
     Indication: PRODUCT USED FOR UNKNOWN INDICATION
     Route: 065
  22. BLINDED LCZ696 [Suspect]
     Active Substance: SACUBITRIL\VALSARTAN
     Indication: CARDIAC FAILURE
     Dosage: CODE NOT BROKEN
     Route: 048
     Dates: start: 20151221, end: 20170327
  23. BLINDED NO TREATMENT RECEIVED [Suspect]
     Active Substance: INVESTIGATIONAL PRODUCT
     Indication: CARDIAC FAILURE
     Dosage: CODE NOT BROKEN
     Route: 048
     Dates: start: 20151221, end: 20170327
  24. BLINDED NO TREATMENT RECEIVED [Suspect]
     Active Substance: INVESTIGATIONAL PRODUCT
     Dosage: CODE NOT BROKEN
     Route: 048
     Dates: end: 20170428
  25. FAMOTIDINE. [Concomitant]
     Active Substance: FAMOTIDINE
     Indication: PROPHYLAXIS
     Dosage: 20 MG, QD (OM)
     Route: 048
     Dates: start: 20150519, end: 20170916
  26. ATORVASTATIN [Concomitant]
     Active Substance: ATORVASTATIN
     Indication: HYPERLIPIDAEMIA
     Dosage: 20 MG, QD (ON)
     Route: 048
     Dates: start: 20150729, end: 20170916
  27. GLIPIZIDE. [Concomitant]
     Active Substance: GLIPIZIDE
     Indication: DIABETES MELLITUS
     Dosage: 2.5 MG, BID
     Route: 048
     Dates: start: 20170424, end: 20170530
  28. FEXOFENADINE [Concomitant]
     Active Substance: FEXOFENADINE\FEXOFENADINE HYDROCHLORIDE
     Indication: PRURITUS
     Dosage: 180 MG, PRN
     Route: 048
     Dates: start: 20170215, end: 20170916
  29. DIOVAN [Suspect]
     Active Substance: VALSARTAN
     Indication: CARDIAC FAILURE
     Dosage: CODE NOT BROKEN
     Route: 048
     Dates: start: 20151221, end: 20170327
  30. DIOVAN [Suspect]
     Active Substance: VALSARTAN
     Dosage: CODE NOT BROKEN
     Route: 048
     Dates: start: 20170429
  31. CALCIUM CARBONATE. [Concomitant]
     Active Substance: CALCIUM CARBONATE
     Indication: SUPPLEMENTATION THERAPY
     Dosage: 12.50 MG, BID
     Route: 048
     Dates: start: 20150206, end: 20170427
  32. CLOPIDOGREL [Concomitant]
     Active Substance: CLOPIDOGREL BISULFATE
     Indication: CEREBROVASCULAR ACCIDENT
     Dosage: 75 MG, QD (OM)
     Route: 048
     Dates: start: 20131022, end: 20170916
  33. BETAMETHASONE VALERATE. [Concomitant]
     Active Substance: BETAMETHASONE VALERATE
     Indication: ECZEMA ASTEATOTIC
     Dosage: 1 APPLICATION, BID
     Route: 061
     Dates: start: 20170309, end: 20170916
  34. POTASSIUM CHLORIDE. [Concomitant]
     Active Substance: POTASSIUM CHLORIDE
     Indication: MINERAL SUPPLEMENTATION
     Dosage: 600 MG, QW3 (3 TIMES A WEEK)
     Route: 048
     Dates: start: 20170725, end: 20170916
  35. DIOVAN [Suspect]
     Active Substance: VALSARTAN
     Dosage: CODE NOT BROKEN
     Route: 048
     Dates: end: 20170428
  36. BLINDED LCZ696 [Suspect]
     Active Substance: SACUBITRIL\VALSARTAN
     Dosage: CODE NOT BROKEN
     Route: 048
     Dates: end: 20170428
  37. BLINDED NO TREATMENT RECEIVED [Suspect]
     Active Substance: INVESTIGATIONAL PRODUCT
     Dosage: CODE NOT BROKEN
     Route: 048
     Dates: start: 20170429
  38. LASIX [Concomitant]
     Active Substance: FUROSEMIDE
     Dosage: 40 MG, BID
     Route: 048
     Dates: start: 20170725, end: 20170916
  39. AVODART [Concomitant]
     Active Substance: DUTASTERIDE
     Indication: BENIGN PROSTATIC HYPERPLASIA
     Dosage: 0.5 MG, QD (OM)
     Route: 048
     Dates: start: 20170725, end: 20170916

REACTIONS (13)
  - Anaemia [Recovered/Resolved]
  - Osteoarthritis [Recovered/Resolved]
  - Constipation [Recovered/Resolved]
  - Eczema asteatotic [Recovered/Resolved]
  - Orthostatic hypotension [Recovered/Resolved]
  - Dizziness [Recovered/Resolved]
  - Dizziness [Recovered/Resolved]
  - Acute stress disorder [Unknown]
  - Acute kidney injury [Recovering/Resolving]
  - Dizziness [Recovered/Resolved]
  - Orthostatic hypotension [Recovered/Resolved]
  - Acute kidney injury [Recovered/Resolved]
  - Upper respiratory tract infection [Recovered/Resolved]

NARRATIVE: CASE EVENT DATE: 20170325
